FAERS Safety Report 25545979 (Version 1)
Quarter: 2025Q3

REPORT INFORMATION
  Report Type: Spontaneous
  Country: EU (occurrence: EU)
  Receive Date: 20250712
  Receipt Date: 20250712
  Transmission Date: 20251020
  Serious: Yes (Death, Other)
  Sender: AMGEN
  Company Number: EU-AMGEN-FRASP2025132651

PATIENT
  Age: 49 Year
  Sex: Male

DRUGS (6)
  1. BEVACIZUMAB [Suspect]
     Active Substance: BEVACIZUMAB
     Indication: Medulloblastoma recurrent
     Dosage: 10 MILLIGRAM/KILOGRAM, Q2WK
     Route: 040
  2. BEVACIZUMAB [Suspect]
     Active Substance: BEVACIZUMAB
     Indication: Off label use
     Route: 040
  3. CARBOPLATIN [Concomitant]
     Active Substance: CARBOPLATIN
     Indication: Brain neoplasm
  4. ETOPOSIDE [Concomitant]
     Active Substance: ETOPOSIDE
  5. ETOPOSIDE [Concomitant]
     Active Substance: ETOPOSIDE
  6. TEMOZOLOMIDE [Concomitant]
     Active Substance: TEMOZOLOMIDE
     Indication: Brain neoplasm

REACTIONS (5)
  - Medulloblastoma recurrent [Fatal]
  - Neutropenia [Unknown]
  - Neurotoxicity [Unknown]
  - Lymphopenia [Unknown]
  - Off label use [Unknown]
